FAERS Safety Report 8586029-0 (Version None)
Quarter: 2012Q3

REPORT INFORMATION
  Report Type: 
  Country: None (occurrence: None)
  Receive Date: 20120810
  Receipt Date: 20120802
  Transmission Date: 20120928
  Serious: Yes (Death, Other)
  Sender: FDA-Public Use
  Company Number: US-MPIJNJ-2012-04875

PATIENT
  Age: 44 Year
  Sex: Female

DRUGS (11)
  1. MYCOPHENOLATE MOFETIL [Suspect]
     Dosage: 1 G, UNK
     Route: 042
  2. METHYLPREDNISOLONE [Suspect]
     Dosage: 500 MG, UNK
     Route: 042
  3. IMMUNOGLOBULINS NOS [Suspect]
     Dosage: UNK
  4. PREDNISONE TAB [Concomitant]
     Indication: ADRENAL INSUFFICIENCY
     Dosage: 10 MG, UNK
  5. MYCOPHENOLATE MOFETIL [Suspect]
     Indication: PROPHYLAXIS AGAINST TRANSPLANT REJECTION
     Dosage: 500 MG, BID
  6. THYMOGLOBULIN [Suspect]
     Dosage: 1.25 UNK, UNK
     Route: 042
  7. RITUXIMAB [Concomitant]
     Indication: PROPHYLAXIS AGAINST TRANSPLANT REJECTION
     Dosage: 375 MG/M2, UNK
  8. METHYLPREDNISOLONE [Suspect]
     Indication: PROPHYLAXIS AGAINST TRANSPLANT REJECTION
     Dosage: 125 MG, CYCLIC
     Route: 042
  9. TACROLIMUS [Suspect]
     Indication: PROPHYLAXIS AGAINST TRANSPLANT REJECTION
     Dosage: UNK
  10. VELCADE [Suspect]
     Indication: PROPHYLAXIS AGAINST TRANSPLANT REJECTION
     Dosage: 1.3 MG/M2, CYCLIC
     Route: 042
  11. IMMUNOGLOBULINS NOS [Suspect]
     Indication: PROPHYLAXIS AGAINST TRANSPLANT REJECTION
     Dosage: 0.5 MG/KG, CYCLIC
     Route: 042

REACTIONS (11)
  - CALCIPHYLAXIS [None]
  - MESENTERIC HAEMORRHAGE [None]
  - SEPSIS [None]
  - TRANSPLANT REJECTION [None]
  - ESCHERICHIA INFECTION [None]
  - IMPAIRED HEALING [None]
  - DEVICE RELATED SEPSIS [None]
  - ASTHENIA [None]
  - BLOOD CREATININE INCREASED [None]
  - COLONIC FISTULA [None]
  - ENTEROCOCCAL INFECTION [None]
